FAERS Safety Report 14565492 (Version 2)
Quarter: 2018Q1

REPORT INFORMATION
  Report Type: Spontaneous
  Country: US (occurrence: US)
  Receive Date: 20180223
  Receipt Date: 20180320
  Transmission Date: 20180509
  Serious: Yes (Other)
  Sender: FDA-Public Use
  Company Number: US-ACCORD-063666

PATIENT
  Age: 63 Year
  Sex: Male

DRUGS (3)
  1. SIROLIMUS. [Concomitant]
     Active Substance: SIROLIMUS
     Indication: BONE MARROW TRANSPLANT
  2. TACROLIMUS. [Suspect]
     Active Substance: TACROLIMUS
     Indication: BONE MARROW TRANSPLANT
     Dosage: 0.5 MG/DAY
  3. MYCOPHENOLIC ACID. [Concomitant]
     Active Substance: MYCOPHENOLIC ACID
     Indication: ACUTE GRAFT VERSUS HOST DISEASE

REACTIONS (3)
  - Optic neuropathy [Recovering/Resolving]
  - Blood creatinine increased [Recovered/Resolved]
  - Drug level increased [Recovered/Resolved]
